FAERS Safety Report 12468559 (Version 1)
Quarter: 2016Q2

REPORT INFORMATION
  Report Type: Spontaneous
  Country: FR (occurrence: FR)
  Receive Date: 20160615
  Receipt Date: 20160615
  Transmission Date: 20160815
  Serious: Yes (Life-Threatening, Disabling, Other)
  Sender: FDA-Public Use
  Company Number: FR-BAXTER-2016BAX030509

PATIENT
  Age: 61 Year

DRUGS (36)
  1. SULFAMETHOXAZOLE/TRIMETHOPRIM [Suspect]
     Active Substance: SULFAMETHOXAZOLE\TRIMETHOPRIM
     Indication: ENTEROCOCCAL INFECTION
     Route: 065
     Dates: start: 201411
  2. AMOXICILLIN. [Concomitant]
     Active Substance: AMOXICILLIN
     Indication: ENTEROCOCCAL INFECTION
  3. AMOXICILLIN. [Concomitant]
     Active Substance: AMOXICILLIN
     Indication: BACTEROIDES INFECTION
  4. LEVOFLOXACIN. [Concomitant]
     Active Substance: LEVOFLOXACIN
     Indication: PROTEUS INFECTION
     Route: 065
     Dates: start: 2013
  5. AMOXICILLIN. [Suspect]
     Active Substance: AMOXICILLIN
     Indication: ESCHERICHIA INFECTION
     Route: 042
     Dates: start: 201411
  6. SULFAMETHOXAZOLE/TRIMETHOPRIM [Suspect]
     Active Substance: SULFAMETHOXAZOLE\TRIMETHOPRIM
     Indication: ESCHERICHIA INFECTION
  7. AMOXICILLIN. [Concomitant]
     Active Substance: AMOXICILLIN
     Indication: STAPHYLOCOCCAL INFECTION
     Route: 048
  8. LEVOFLOXACIN. [Concomitant]
     Active Substance: LEVOFLOXACIN
     Indication: BACTEROIDES INFECTION
  9. CLINDAMYCIN [Concomitant]
     Active Substance: CLINDAMYCIN\CLINDAMYCIN PHOSPHATE
     Indication: STAPHYLOCOCCAL INFECTION
  10. METRONIDAZOLE BAXTER 0,5 POUR CENT, SOLUTION INJECTABLE EN POCHE [Suspect]
     Active Substance: METRONIDAZOLE
     Indication: ESCHERICHIA INFECTION
  11. VANCOMYCIN [Suspect]
     Active Substance: VANCOMYCIN
     Indication: ANTIBIOTIC THERAPY
  12. AMOXICILLIN. [Concomitant]
     Active Substance: AMOXICILLIN
     Indication: STAPHYLOCOCCAL INFECTION
  13. LEVOFLOXACIN. [Concomitant]
     Active Substance: LEVOFLOXACIN
     Indication: STAPHYLOCOCCAL INFECTION
  14. ORBENINE [Concomitant]
     Active Substance: CLOXACILLIN SODIUM
     Indication: PROTEUS INFECTION
  15. CLINDAMYCIN [Concomitant]
     Active Substance: CLINDAMYCIN\CLINDAMYCIN PHOSPHATE
     Indication: PROTEUS INFECTION
     Route: 048
  16. CLAVULANIC ACID [Concomitant]
     Active Substance: CLAVULANIC ACID
     Indication: ENTEROBACTER INFECTION
  17. METRONIDAZOLE BAXTER 0,5 POUR CENT, SOLUTION INJECTABLE EN POCHE [Suspect]
     Active Substance: METRONIDAZOLE
     Indication: PROTEUS INFECTION
     Route: 065
     Dates: start: 201411
  18. METRONIDAZOLE BAXTER 0,5 POUR CENT, SOLUTION INJECTABLE EN POCHE [Suspect]
     Active Substance: METRONIDAZOLE
     Indication: BACILLUS INFECTION
     Route: 048
     Dates: start: 2014
  19. SULFAMETHOXAZOLE/TRIMETHOPRIM [Suspect]
     Active Substance: SULFAMETHOXAZOLE\TRIMETHOPRIM
     Indication: PROTEUS INFECTION
     Route: 048
     Dates: start: 2014
  20. AMOXICILLIN. [Concomitant]
     Active Substance: AMOXICILLIN
     Indication: PROTEUS INFECTION
     Route: 065
     Dates: start: 2013
  21. LEVOFLOXACIN. [Concomitant]
     Active Substance: LEVOFLOXACIN
     Indication: ENTEROCOCCAL INFECTION
  22. CLAVULANIC ACID [Concomitant]
     Active Substance: CLAVULANIC ACID
     Indication: ENTEROCOCCAL INFECTION
     Route: 065
     Dates: start: 2013
  23. CEFOTAXIME [Concomitant]
     Active Substance: CEFOTAXIME SODIUM
     Indication: STAPHYLOCOCCAL INFECTION
  24. AMOXICILLIN. [Concomitant]
     Active Substance: AMOXICILLIN
     Indication: ENTEROBACTER INFECTION
  25. METRONIDAZOLE BAXTER 0,5 POUR CENT, SOLUTION INJECTABLE EN POCHE [Suspect]
     Active Substance: METRONIDAZOLE
     Indication: ENTEROCOCCAL INFECTION
  26. AMOXICILLIN. [Suspect]
     Active Substance: AMOXICILLIN
     Indication: BACTEROIDES INFECTION
     Route: 048
     Dates: start: 2014
  27. SULFAMETHOXAZOLE/TRIMETHOPRIM [Suspect]
     Active Substance: SULFAMETHOXAZOLE\TRIMETHOPRIM
     Indication: BACTEROIDES INFECTION
  28. CEFOTAXIME [Concomitant]
     Active Substance: CEFOTAXIME SODIUM
     Indication: PROTEUS INFECTION
     Route: 042
  29. CLAVULANIC ACID [Concomitant]
     Active Substance: CLAVULANIC ACID
     Indication: STAPHYLOCOCCAL INFECTION
  30. CLAVULANIC ACID [Concomitant]
     Active Substance: CLAVULANIC ACID
     Indication: PROTEUS INFECTION
  31. AMOXICILLIN. [Suspect]
     Active Substance: AMOXICILLIN
     Indication: PROTEUS INFECTION
  32. AMOXICILLIN. [Suspect]
     Active Substance: AMOXICILLIN
     Indication: ENTEROCOCCAL INFECTION
  33. VANCOMYCIN [Suspect]
     Active Substance: VANCOMYCIN
     Indication: ANTIBIOTIC THERAPY
     Route: 065
     Dates: start: 201411
  34. LEVOFLOXACIN. [Concomitant]
     Active Substance: LEVOFLOXACIN
     Indication: ENTEROBACTER INFECTION
  35. CLAVULANIC ACID [Concomitant]
     Active Substance: CLAVULANIC ACID
     Indication: BACTEROIDES INFECTION
  36. ORBENINE [Concomitant]
     Active Substance: CLOXACILLIN SODIUM
     Indication: STAPHYLOCOCCAL INFECTION
     Route: 042

REACTIONS (2)
  - Drug ineffective [Unknown]
  - Treatment failure [Unknown]
